FAERS Safety Report 25842477 (Version 2)
Quarter: 2025Q4

REPORT INFORMATION
  Report Type: Spontaneous
  Country: EU (occurrence: EU)
  Receive Date: 20250924
  Receipt Date: 20251027
  Transmission Date: 20260119
  Serious: Yes (Other)
  Sender: MYLAN
  Company Number: None

PATIENT
  Age: 74 Year
  Sex: Female
  Weight: 44 kg

DRUGS (13)
  1. PACLITAXEL [Suspect]
     Active Substance: PACLITAXEL
     Indication: Hormone receptor negative HER2 positive breast cancer
     Dosage: 1 MILLIGRAM/KILOGRAM, 1 CYCLE (21-DAY CYCLE PACLITAXEL ON DAYS 1, 8, 15)
     Dates: start: 20250515, end: 20250620
  2. TRASTUZUMAB [Suspect]
     Active Substance: TRASTUZUMAB
     Indication: Hormone receptor negative HER2 positive breast cancer
     Dosage: 1 MILLIGRAM/KILOGRAM, 1 CYCLE, 21-DAY CYCLE TRASTUZUMAB ON DAY 1
     Dates: start: 20250515, end: 20250718
  3. PERTUZUMAB [Suspect]
     Active Substance: PERTUZUMAB
     Indication: Hormone receptor negative HER2 positive breast cancer
     Dosage: 1 MILLIGRAM/KILOGRAM,1 CYCLE (21-DAY CYCLE PERTUZUMAB ON DAY 1)
     Dates: start: 20250515, end: 20250718
  4. ENHERTU [Suspect]
     Active Substance: FAM-TRASTUZUMAB DERUXTECAN-NXKI
     Indication: Hormone receptor negative HER2 positive breast cancer
     Dosage: 5.4 MILLIGRAM/KILOGRAM, 1 TOTAL
     Dates: start: 20250808, end: 20250808
  5. SKENAN [Concomitant]
     Active Substance: MORPHINE SULFATE
     Indication: Cancer pain
     Dosage: 30 MILLIGRAM, 1 TOTAL (EXTENDED-RELEASE MICROGRANULES IN CAPSULES, 10 MG -0-20 MG LP)
  6. MORPHINE SULFATE [Concomitant]
     Active Substance: MORPHINE SULFATE
     Indication: Cancer pain
     Dosage: 5 MILLIGRAM, PRN (1, AS NECESSARY)
  7. GABAPENTIN [Concomitant]
     Active Substance: GABAPENTIN
     Indication: Product used for unknown indication
     Dosage: 700 MILLIGRAM, TID (1-1-1)
  8. DULOXETINE HYDROCHLORIDE [Concomitant]
     Active Substance: DULOXETINE HYDROCHLORIDE
     Indication: Product used for unknown indication
     Dosage: 60 MILLIGRAM, QD
  9. ZOPICLONE [Concomitant]
     Active Substance: ZOPICLONE
     Indication: Insomnia
     Dosage: 3.25 MILLIGRAM, QD
  10. OXAZEPAM [Concomitant]
     Active Substance: OXAZEPAM
     Indication: Anxiety
     Dosage: 10 MILLIGRAM, PRN (1, AS NECESSARY)
  11. ACETAMINOPHEN [Concomitant]
     Active Substance: ACETAMINOPHEN
     Indication: Pain
     Dosage: 1000 MILLIGRAM, PRN (1 AS NECESSARY)
  12. NEFOPAM HYDROCHLORIDE [Concomitant]
     Active Substance: NEFOPAM HYDROCHLORIDE
     Indication: Pain
     Dosage: 30 MILLIGRAM, PRN (1, AS NECESSARY)
  13. MONTMORILLONITE [Concomitant]
     Active Substance: MONTMORILLONITE
     Indication: Diarrhoea
     Dosage: 3000 MILLIGRAM, PRN (1, AS NECESSARY)

REACTIONS (1)
  - Ejection fraction decreased [Recovered/Resolved]

NARRATIVE: CASE EVENT DATE: 20250825
